FAERS Safety Report 5650832-7 (Version None)
Quarter: 2008Q1

REPORT INFORMATION
  Report Type: 
  Country: None (occurrence: None)
  Receive Date: 20080305
  Receipt Date: 20080222
  Transmission Date: 20080703
  Serious: Yes (Hospitalization)
  Sender: FDA-Public Use
  Company Number: FR-JNJFOC-20080205323

PATIENT
  Age: 80 Year
  Sex: Male

DRUGS (5)
  1. OFLOCET [Suspect]
     Indication: URINARY TRACT INFECTION
     Route: 065
  2. TAVANIC [Suspect]
     Indication: INFECTION
     Route: 065
  3. BACTRIM [Suspect]
     Indication: INFECTION
     Route: 065
  4. FLAGYL [Suspect]
     Indication: INFECTION
     Route: 065
  5. DALACINE [Suspect]
     Indication: DRUG USE FOR UNKNOWN INDICATION
     Route: 065

REACTIONS (2)
  - POLYARTERITIS NODOSA [None]
  - RENAL FAILURE ACUTE [None]
